FAERS Safety Report 7366020-2 (Version None)
Quarter: 2011Q1

REPORT INFORMATION
  Report Type: 
  Country: None (occurrence: None)
  Receive Date: 20110322
  Receipt Date: 20100920
  Transmission Date: 20110831
  Serious: Yes (Hospitalization, Other)
  Sender: FDA-Public Use
  Company Number: US-BAYER-201021650NA

PATIENT
  Sex: Female
  Weight: 120.18 kg

DRUGS (12)
  1. AFRIN [Concomitant]
     Indication: EPISTAXIS
  2. PROTONIX [Concomitant]
  3. IBUPROFEN [Concomitant]
     Dosage: UNK
     Dates: start: 20050101
  4. DIOVAN HCT [Concomitant]
     Dosage: 80/12.5
     Route: 048
  5. ZOCOR [Concomitant]
  6. FERROUS SULFATE TAB [Concomitant]
     Dosage: 325 MG, TID
     Route: 048
  7. BACITRACIN [Concomitant]
  8. YAZ [Suspect]
     Indication: CONTRACEPTION
     Dosage: UNK UNK, QD
     Route: 048
     Dates: start: 20061101, end: 20070821
  9. YASMIN [Suspect]
     Indication: PRODUCT USED FOR UNKNOWN INDICATION
     Route: 048
     Dates: start: 20061001, end: 20070821
  10. NEUTRA-PHOS [Concomitant]
  11. ATENOLOL [Concomitant]
     Indication: HYPERTENSION
     Dosage: 100 MG, DAILY
     Route: 048
  12. BETA BLOCKING AGENTS [Concomitant]
     Indication: HYPERTENSION

REACTIONS (5)
  - DYSPNOEA [None]
  - PULMONARY EMBOLISM [None]
  - MYOCARDIAL INFARCTION [None]
  - DIZZINESS [None]
  - HYPOXIA [None]
